FAERS Safety Report 22029010 (Version 3)
Quarter: 2023Q2

REPORT INFORMATION
  Report Type: Other
  Country: CN (occurrence: None)
  Receive Date: 20230223
  Receipt Date: 20230412
  Transmission Date: 20230721
  Serious: Yes (Other)
  Sender: FDA-Public Use
  Company Number: CN-ROCHE-3291866

PATIENT
  Sex: Female

DRUGS (3)
  1. GAVRETO [Suspect]
     Active Substance: PRALSETINIB
     Indication: Lung neoplasm malignant
     Route: 048
     Dates: start: 20210813
  2. GAVRETO [Suspect]
     Active Substance: PRALSETINIB
     Dosage: 400 MG A WEEK AND 300 MG NEXT WEEK
     Route: 048
  3. GAVRETO [Suspect]
     Active Substance: PRALSETINIB
     Route: 048

REACTIONS (3)
  - Cholecystitis [Recovering/Resolving]
  - Oedema [Recovering/Resolving]
  - Gallbladder enlargement [Unknown]

NARRATIVE: CASE EVENT DATE: 20210813
